FAERS Safety Report 22173034 (Version 1)
Quarter: 2023Q2

REPORT INFORMATION
  Report Type: Spontaneous
  Country: CH (occurrence: None)
  Receive Date: 20230404
  Receipt Date: 20230404
  Transmission Date: 20230721
  Serious: Yes (Other)
  Sender: FDA-Public Use
  Company Number: CH-ROCHE-3318735

PATIENT

DRUGS (1)
  1. HERCEPTIN [Suspect]
     Active Substance: TRASTUZUMAB
     Indication: Breast cancer
     Route: 065

REACTIONS (11)
  - Lacrimation increased [Unknown]
  - Hair growth abnormal [Unknown]
  - Eye swelling [Unknown]
  - Headache [Unknown]
  - Arthralgia [Unknown]
  - Nail disorder [Unknown]
  - Muscle spasms [Unknown]
  - Memory impairment [Unknown]
  - Rhinorrhoea [Unknown]
  - Fatigue [Unknown]
  - Somnolence [Unknown]
